FAERS Safety Report 19818901 (Version 2)
Quarter: 2022Q1

REPORT INFORMATION
  Report Type: Spontaneous
  Country: US (occurrence: US)
  Receive Date: 20210912
  Receipt Date: 20220128
  Transmission Date: 20220424
  Serious: Yes (Hospitalization, Other)
  Sender: FDA-Public Use
  Company Number: US-GILEAD-2021-0547511

PATIENT
  Sex: Male
  Weight: 74.376 kg

DRUGS (25)
  1. TRUVADA [Suspect]
     Active Substance: EMTRICITABINE\TENOFOVIR DISOPROXIL FUMARATE
     Indication: HIV infection
     Dosage: UNK
     Route: 048
     Dates: start: 2008, end: 201901
  2. DESCOVY [Concomitant]
     Active Substance: EMTRICITABINE\TENOFOVIR ALAFENAMIDE FUMARATE
  3. CRIXIVAN [Concomitant]
     Active Substance: INDINAVIR SULFATE
  4. ISENTRESS [Concomitant]
     Active Substance: RALTEGRAVIR POTASSIUM
  5. KALETRA [Concomitant]
     Active Substance: LOPINAVIR\RITONAVIR
  6. NORVIR [Concomitant]
     Active Substance: RITONAVIR
  7. PREZCOBIX [Concomitant]
     Active Substance: COBICISTAT\DARUNAVIR ETHANOLATE
  8. PREZISTA [Concomitant]
     Active Substance: DARUNAVIR ETHANOLATE
  9. SELZENTRY [Concomitant]
     Active Substance: MARAVIROC
  10. TIVICAY [Concomitant]
     Active Substance: DOLUTEGRAVIR SODIUM
  11. AZT [Concomitant]
     Active Substance: ZIDOVUDINE
  12. METOPROLOL [Concomitant]
     Active Substance: METOPROLOL
  13. TRADJENTA [Concomitant]
     Active Substance: LINAGLIPTIN
  14. NOVOLOG [Concomitant]
     Active Substance: INSULIN ASPART
  15. LANTUS [Concomitant]
     Active Substance: INSULIN GLARGINE
  16. FARXIGA [Concomitant]
     Active Substance: DAPAGLIFLOZIN PROPANEDIOL
  17. ASPIRIN [Concomitant]
     Active Substance: ASPIRIN
  18. LISINOPRIL [Concomitant]
     Active Substance: LISINOPRIL
  19. FENOFIBRATE [Concomitant]
     Active Substance: FENOFIBRATE
  20. PRAVASTATIN [Concomitant]
     Active Substance: PRAVASTATIN
  21. LEVAQUIN [Concomitant]
     Active Substance: LEVOFLOXACIN
  22. TESTOSTERONE [Concomitant]
     Active Substance: TESTOSTERONE
  23. HYDROCHLOROTHIAZIDE [Concomitant]
     Active Substance: HYDROCHLOROTHIAZIDE
  24. VITAMINS NOS [Concomitant]
     Active Substance: VITAMINS
  25. METFORMIN [Concomitant]
     Active Substance: METFORMIN HYDROCHLORIDE

REACTIONS (18)
  - Osteoporosis [Not Recovered/Not Resolved]
  - Femur fracture [Not Recovered/Not Resolved]
  - Chronic kidney disease [Not Recovered/Not Resolved]
  - Hypokalaemia [Not Recovered/Not Resolved]
  - Emotional distress [Not Recovered/Not Resolved]
  - Anxiety [Not Recovered/Not Resolved]
  - Anhedonia [Not Recovered/Not Resolved]
  - Bone density decreased [Unknown]
  - Fatigue [Unknown]
  - Osteopenia [Unknown]
  - Dysstasia [Not Recovered/Not Resolved]
  - Gait disturbance [Not Recovered/Not Resolved]
  - Musculoskeletal disorder [Not Recovered/Not Resolved]
  - Joint stiffness [Unknown]
  - Patella fracture [Recovered/Resolved]
  - Anaemia [Not Recovered/Not Resolved]
  - Mobility decreased [Not Recovered/Not Resolved]
  - Pain [Not Recovered/Not Resolved]

NARRATIVE: CASE EVENT DATE: 20160101
